FAERS Safety Report 14881646 (Version 1)
Quarter: 2018Q2

REPORT INFORMATION
  Report Type: Spontaneous
  Country: FR (occurrence: FR)
  Receive Date: 20180511
  Receipt Date: 20180511
  Transmission Date: 20180711
  Serious: Yes (Other)
  Sender: FDA-Public Use
  Company Number: FR-AUROBINDO-AUR-APL-2018-025152

PATIENT
  Age: 23 Year
  Sex: Female
  Weight: 53 kg

DRUGS (1)
  1. NAPROXEN. [Suspect]
     Active Substance: NAPROXEN
     Indication: BACK PAIN
     Dosage: 1 DOSAGE FORM, ONCE A DAY
     Route: 048
     Dates: start: 20170220, end: 20170226

REACTIONS (1)
  - Enteritis [Not Recovered/Not Resolved]

NARRATIVE: CASE EVENT DATE: 20170304
